FAERS Safety Report 6618301-5 (Version None)
Quarter: 2010Q1

REPORT INFORMATION
  Report Type: 
  Country: None (occurrence: None)
  Receive Date: 20100302
  Receipt Date: 20091117
  Transmission Date: 20100710
  Serious: Yes (Other)
  Sender: FDA-Public Use
  Company Number: US-JNJFOC-20100210732

PATIENT
  Age: 47 Year
  Sex: Female

DRUGS (2)
  1. DECITABINE (DECITABINE) LYOPHILIZED POWDER [Suspect]
     Indication: MYELOID LEUKAEMIA
     Dosage: 75 MG/M2, INTRAVENOUS
     Route: 042
  2. VALPROIC ACID [Suspect]
     Indication: MYELOID LEUKAEMIA
     Dosage: 2.5 G, IN 1 DAY,

REACTIONS (1)
  - ACUTE FEBRILE NEUTROPHILIC DERMATOSIS [None]
